FAERS Safety Report 9542713 (Version 3)
Quarter: 2014Q2

REPORT INFORMATION
  Report Type: Report from Study
  Country: CA (occurrence: CA)
  Receive Date: 20130923
  Receipt Date: 20140428
  Transmission Date: 20141212
  Serious: Yes (Other)
  Sender: FDA-Public Use
  Company Number: CA-JNJFOC-20130910641

PATIENT
  Age: 42 Year
  Sex: Female
  Weight: 82 kg

DRUGS (12)
  1. REMICADE [Suspect]
     Indication: PSORIATIC ARTHROPATHY
     Dosage: 27TH INFUSION.
     Route: 042
     Dates: start: 20130916
  2. REMICADE [Suspect]
     Indication: PSORIATIC ARTHROPATHY
     Route: 042
     Dates: start: 20100606
  3. REMICADE [Suspect]
     Indication: PSORIATIC ARTHROPATHY
     Route: 042
     Dates: start: 20090808
  4. METHOTREXATE [Concomitant]
     Dosage: 8 TABLETS
     Route: 048
     Dates: start: 201006
  5. WARFARIN [Concomitant]
     Route: 048
  6. PREGABALIN [Concomitant]
     Route: 048
  7. METOPROLOL [Concomitant]
     Route: 048
  8. AMIODARONE [Concomitant]
     Route: 048
  9. FERROUS GLUCONATE [Concomitant]
     Route: 048
  10. FOLIC ACID [Concomitant]
     Route: 048
  11. FOLIC ACID [Concomitant]
     Route: 048
  12. BENADRYL [Concomitant]
     Indication: PREMEDICATION
     Route: 065
     Dates: start: 20130916

REACTIONS (4)
  - Cerebrovascular accident [Recovering/Resolving]
  - Chest discomfort [Recovered/Resolved]
  - Dyspnoea [Recovered/Resolved]
  - Infusion related reaction [Recovered/Resolved]
